FAERS Safety Report 18100380 (Version 2)
Quarter: 2020Q4

REPORT INFORMATION
  Report Type: Spontaneous
  Country: IT (occurrence: IT)
  Receive Date: 20200731
  Receipt Date: 20201001
  Transmission Date: 20210113
  Serious: Yes (Other)
  Sender: FDA-Public Use
  Company Number: IT-JNJFOC-20200739305

PATIENT
  Age: 65 Year
  Sex: Male

DRUGS (1)
  1. STELARA [Suspect]
     Active Substance: USTEKINUMAB
     Indication: PSORIASIS
     Dosage: CYCLICAL
     Route: 060

REACTIONS (4)
  - Product use issue [Unknown]
  - Superficial spreading melanoma stage unspecified [Unknown]
  - Melanocytic naevus [Unknown]
  - Off label use [Unknown]

NARRATIVE: CASE EVENT DATE: 20191001
